FAERS Safety Report 10557942 (Version 2)
Quarter: 2014Q4

REPORT INFORMATION
  Report Type: Spontaneous
  Country: IT (occurrence: IT)
  Receive Date: 20141031
  Receipt Date: 20141103
  Transmission Date: 20150529
  Serious: Yes (Hospitalization)
  Sender: FDA-Public Use
  Company Number: IT-PFIZER INC-2014296282

PATIENT
  Age: 80 Year
  Sex: Female
  Weight: 55 kg

DRUGS (5)
  1. CONTRAMAL [Interacting]
     Active Substance: TRAMADOL HYDROCHLORIDE
     Indication: TENDONITIS
     Dosage: 80 MG/ML, DAILY
     Route: 048
  2. ALPRAZOLAM. [Interacting]
     Active Substance: ALPRAZOLAM
     Indication: DEPRESSION
     Dosage: 0.37 MG, DAILY
     Route: 048
  3. CONTRAMAL [Interacting]
     Active Substance: TRAMADOL HYDROCHLORIDE
     Dosage: 20 GTT, 3X/DAY
     Route: 048
  4. ALPRAZOLAM. [Suspect]
     Active Substance: ALPRAZOLAM
     Indication: DEPRESSION
     Dosage: 0.5 MG, DAILY
     Route: 048
  5. PROZIN [Interacting]
     Active Substance: CHLORPROMAZINE HYDROCHLORIDE
     Indication: DEPRESSION
     Dosage: 40 MG/ML, DAILY
     Route: 048

REACTIONS (4)
  - Liver function test abnormal [Unknown]
  - Lethargy [Recovered/Resolved]
  - Drug interaction [Unknown]
  - Renal function test abnormal [Unknown]

NARRATIVE: CASE EVENT DATE: 2014
